FAERS Safety Report 16415892 (Version 1)
Quarter: 2019Q2

REPORT INFORMATION
  Report Type: Spontaneous
  Country: US (occurrence: US)
  Receive Date: 20190611
  Receipt Date: 20190611
  Transmission Date: 20190711
  Serious: No
  Sender: FDA-Public Use
  Company Number: US-SA-2019SA157430

PATIENT
  Age: 35 Year
  Sex: Female
  Weight: 54.4 kg

DRUGS (9)
  1. CEREZYME [Suspect]
     Active Substance: IMIGLUCERASE
     Indication: GLYCOGEN STORAGE DISEASE TYPE IV
  2. CEREZYME [Suspect]
     Active Substance: IMIGLUCERASE
     Indication: GAUCHER^S DISEASE
     Dosage: 1600 IU, QOW
     Route: 042
     Dates: start: 20170502
  3. LEVOTHYROXINE. [Concomitant]
     Active Substance: LEVOTHYROXINE
     Dosage: 25 UG, QD
     Route: 048
     Dates: start: 20190303
  4. SODIUM CHLORIDE. [Concomitant]
     Active Substance: SODIUM CHLORIDE
     Dosage: 0.9 %
     Route: 042
     Dates: start: 20190423
  5. PRENATAL [ASCORBIC ACID;BETACAROTENE;CALCIUM CARBONATE;COLECALCIFEROL; [Concomitant]
     Dosage: 3 DF, QD
     Route: 048
     Dates: start: 20180710
  6. NORMAL SALINE [Concomitant]
     Active Substance: SODIUM CHLORIDE
     Dosage: 0.9 %
     Route: 042
     Dates: start: 20190423
  7. EPINEPHRINE. [Concomitant]
     Active Substance: EPINEPHRINE
     Indication: ANAPHYLAXIS TREATMENT
     Dosage: 0.3 MG, PRN
     Route: 042
     Dates: start: 20190423
  8. STERILE WATER [Concomitant]
     Active Substance: WATER
     Dosage: 40 ML
     Route: 042
     Dates: start: 20190423
  9. DIPHENHYDRAMINE. [Concomitant]
     Active Substance: DIPHENHYDRAMINE
     Indication: ANAPHYLAXIS TREATMENT
     Dosage: 25 MG, PRN
     Route: 048
     Dates: start: 20190423

REACTIONS (1)
  - Exposure during pregnancy [Unknown]

NARRATIVE: CASE EVENT DATE: 201905
